FAERS Safety Report 25461488 (Version 2)
Quarter: 2025Q2

REPORT INFORMATION
  Report Type: Spontaneous
  Country: US (occurrence: US)
  Receive Date: 20250620
  Receipt Date: 20250620
  Transmission Date: 20250716
  Serious: Yes (Hospitalization, Other)
  Sender: SERVIER
  Company Number: US-SERVIER-S25008190

PATIENT

DRUGS (2)
  1. TIBSOVO [Suspect]
     Active Substance: IVOSIDENIB
     Indication: Astrocytoma
     Route: 048
     Dates: start: 20240911, end: 20240926
  2. TIBSOVO [Suspect]
     Active Substance: IVOSIDENIB
     Route: 048
     Dates: start: 202410

REACTIONS (5)
  - Seizure [Recovered/Resolved]
  - Cerebral haematoma [Recovered/Resolved]
  - Epileptic aura [Not Recovered/Not Resolved]
  - Off label use [Recovered/Resolved]
  - Drug ineffective for unapproved indication [Recovered/Resolved]

NARRATIVE: CASE EVENT DATE: 20240911
